FAERS Safety Report 6378442-7 (Version None)
Quarter: 2009Q3

REPORT INFORMATION
  Report Type: 
  Country: None (occurrence: None)
  Receive Date: 20090927
  Receipt Date: 20090909
  Transmission Date: 20100115
  Serious: Yes (Other)
  Sender: FDA-Public Use
  Company Number: US-BAYER-200933503NA

PATIENT
  Age: 66 Year
  Sex: Male
  Weight: 79 kg

DRUGS (4)
  1. MAGNEVIST [Suspect]
     Indication: DRUG USE FOR UNKNOWN INDICATION
  2. GADOLINIUM [Suspect]
     Indication: DRUG USE FOR UNKNOWN INDICATION
  3. OMNISCAN [Suspect]
     Indication: DRUG USE FOR UNKNOWN INDICATION
  4. PROHANCE [Suspect]
     Indication: DRUG USE FOR UNKNOWN INDICATION

REACTIONS (14)
  - ARTHRITIS [None]
  - ASTHENIA [None]
  - DIARRHOEA [None]
  - DYSPNOEA [None]
  - EYE PRURITUS [None]
  - FLUID RETENTION [None]
  - HEPATIC ENZYME INCREASED [None]
  - MUSCULOSKELETAL STIFFNESS [None]
  - MYOSITIS [None]
  - PAIN [None]
  - PRURITUS [None]
  - RASH [None]
  - SWELLING [None]
  - URTICARIA [None]
